FAERS Safety Report 6449952-9 (Version None)
Quarter: 2009Q4

REPORT INFORMATION
  Report Type: 
  Country: None (occurrence: None)
  Receive Date: 20091120
  Receipt Date: 20091120
  Transmission Date: 20100525
  Serious: Yes (Death)
  Sender: FDA-Public Use
  Company Number: None

PATIENT
  Age: 69 Year
  Sex: Female
  Weight: 74 kg

DRUGS (2)
  1. CLOLAR [Suspect]
     Indication: ACUTE MYELOID LEUKAEMIA
     Dosage: 60MG Q DAY IV
     Route: 042
     Dates: start: 20090627, end: 20090701
  2. CLOLAR [Suspect]
     Indication: ACUTE MYELOID LEUKAEMIA
     Dosage: 60MG Q DAY IV
     Route: 042
     Dates: start: 20090909, end: 20090913

REACTIONS (5)
  - BLOOD PRESSURE DECREASED [None]
  - OEDEMA [None]
  - PANCYTOPENIA [None]
  - RASH ERYTHEMATOUS [None]
  - RENAL INJURY [None]
